FAERS Safety Report 17667710 (Version 1)
Quarter: 2020Q2

REPORT INFORMATION
  Report Type: Report from Study
  Country: US (occurrence: US)
  Receive Date: 20200414
  Receipt Date: 20200414
  Transmission Date: 20200713
  Serious: Yes (Other)
  Sender: FDA-Public Use
  Company Number: US-JNJFOC-20200407088

PATIENT
  Age: 41 Year
  Sex: Male

DRUGS (3)
  1. SPRAVATO [Suspect]
     Active Substance: ESKETAMINE
     Indication: DEPRESSION
  2. SPRAVATO [Suspect]
     Active Substance: ESKETAMINE
     Dates: start: 20200330, end: 20200330
  3. EXCEDRIN [Concomitant]
     Active Substance: ACETAMINOPHEN\ASPIRIN\CAFFEINE
     Indication: PROPHYLAXIS

REACTIONS (8)
  - Vision blurred [Recovered/Resolved]
  - Anxiety [Recovered/Resolved]
  - Sedation [Recovered/Resolved]
  - Muscle tightness [Recovered/Resolved]
  - Dissociation [Recovered/Resolved]
  - Crying [Recovered/Resolved]
  - Headache [Recovered/Resolved]
  - Thinking abnormal [Recovered/Resolved]

NARRATIVE: CASE EVENT DATE: 20200330
